FAERS Safety Report 12080479 (Version 1)
Quarter: 2016Q1

REPORT INFORMATION
  Report Type: Spontaneous
  Country: US (occurrence: US)
  Receive Date: 20160216
  Receipt Date: 20160216
  Transmission Date: 20160526
  Serious: Yes (Other)
  Sender: FDA-Public Use
  Company Number: US-CELGENEUS-USA-2016022843

PATIENT
  Sex: Female

DRUGS (1)
  1. REVLIMID [Suspect]
     Active Substance: LENALIDOMIDE
     Indication: PLASMA CELL MYELOMA
     Dosage: 25 MILLIGRAM
     Route: 048
     Dates: start: 20160128

REACTIONS (4)
  - Full blood count decreased [Unknown]
  - Upper respiratory tract infection [Unknown]
  - Anaemia [Unknown]
  - Pancytopenia [Unknown]

NARRATIVE: CASE EVENT DATE: 2016
